FAERS Safety Report 9949789 (Version 1)
Quarter: 2014Q1

REPORT INFORMATION
  Report Type: Spontaneous
  Country: US (occurrence: None)
  Receive Date: 20140124
  Receipt Date: 20140124
  Transmission Date: 20141002
  Serious: Yes (Hospitalization)
  Sender: FDA-Public Use
  Company Number: 075855

PATIENT
  Age: 79 Year
  Sex: Male

DRUGS (6)
  1. METOLAZONE [Suspect]
  2. FUROSEMIDE [Suspect]
  3. SAXAGLIPTIN [Suspect]
     Indication: TYPE 2 DIABETES MELLITUS
     Dates: start: 20101230
  4. INSULIN ASPART [Suspect]
     Indication: TYPE 2 DIABETES MELLITUS
  5. INSULIN DETEMIR [Suspect]
     Indication: TYPE 2 DIABETES MELLITUS
  6. ASPIRIN /00002701/ [Concomitant]

REACTIONS (1)
  - Dehydration [None]
